FAERS Safety Report 15334264 (Version 3)
Quarter: 2019Q1

REPORT INFORMATION
  Report Type: Spontaneous
  Country: US (occurrence: US)
  Receive Date: 20180830
  Receipt Date: 20190325
  Transmission Date: 20190417
  Serious: No
  Sender: FDA-Public Use
  Company Number: US-PFIZER INC-2018188891

PATIENT
  Age: 58 Year
  Sex: Female
  Weight: 90 kg

DRUGS (4)
  1. LISINOPRIL. [Concomitant]
     Active Substance: LISINOPRIL
     Indication: HYPERTENSION
     Dosage: 60 MG, DAILY (40MG TABLET BY MOUTH IN THE MORNING AND 20MG TABLET BY MOUTH IN THE EVENING)
     Route: 048
     Dates: start: 2017
  2. AROMASIN [Suspect]
     Active Substance: EXEMESTANE
     Indication: OVARIAN CANCER
     Dosage: 25 MG, 1X/DAY
     Route: 048
     Dates: start: 20180501
  3. LEVOTHYROXINE. [Concomitant]
     Active Substance: LEVOTHYROXINE
     Indication: THYROID HORMONE REPLACEMENT THERAPY
     Dosage: 150 UG, 1X/DAY
     Route: 048
     Dates: start: 1998
  4. LEVOTHYROXINE. [Concomitant]
     Active Substance: LEVOTHYROXINE
     Indication: THYROID CANCER

REACTIONS (7)
  - Product use in unapproved indication [Unknown]
  - Anxiety [Unknown]
  - Blood follicle stimulating hormone increased [Unknown]
  - Feeling abnormal [Unknown]
  - Neoplasm progression [Unknown]
  - Hyperhidrosis [Unknown]
  - Mood swings [Unknown]

NARRATIVE: CASE EVENT DATE: 2018
